FAERS Safety Report 7808833-6 (Version None)
Quarter: 2011Q4

REPORT INFORMATION
  Report Type: 
  Country: None (occurrence: None)
  Receive Date: 20111012
  Receipt Date: 20111005
  Transmission Date: 20120403
  Serious: Yes (Hospitalization, Other)
  Sender: FDA-Public Use
  Company Number: PHHY2011JP87694

PATIENT
  Sex: Male
  Weight: 58 kg

DRUGS (6)
  1. DIOVAN [Concomitant]
     Dosage: 80 MG
     Route: 048
     Dates: start: 20110104, end: 20110203
  2. AFINITOR [Suspect]
     Dosage: 5 MG, DAILY
     Route: 048
     Dates: start: 20110314, end: 20110502
  3. NORVASC [Concomitant]
     Dosage: 10 MG
     Route: 048
     Dates: start: 20110104, end: 20110203
  4. AFINITOR [Suspect]
     Indication: RENAL CELL CARCINOMA
     Dosage: 10 MG, DAILY
     Route: 048
     Dates: start: 20110104, end: 20110114
  5. LEVOTHYROXINE SODIUM [Concomitant]
     Dosage: 100 UG, UNK
     Route: 048
     Dates: start: 20110104, end: 20110203
  6. AFINITOR [Suspect]
     Dosage: 10 MG, DAILY
     Route: 048
     Dates: start: 20110219, end: 20110221

REACTIONS (7)
  - TUMOUR HAEMORRHAGE [None]
  - DYSPNOEA [None]
  - WHEEZING [None]
  - FEMUR FRACTURE [None]
  - RENAL FAILURE [None]
  - INTERSTITIAL LUNG DISEASE [None]
  - MALAISE [None]
